FAERS Safety Report 5267313-5 (Version None)
Quarter: 2007Q1

REPORT INFORMATION
  Report Type: 
  Country: None (occurrence: None)
  Receive Date: 20070316
  Receipt Date: 20070312
  Transmission Date: 20070707
  Serious: Yes (Death, Hospitalization)
  Sender: FDA-Public Use
  Company Number: IT-GLAXOSMITHKLINE-B0461969A

PATIENT
  Age: 92 Year
  Sex: Male

DRUGS (1)
  1. VELAMOX [Suspect]
     Indication: DRUG USE FOR UNKNOWN INDICATION

REACTIONS (5)
  - CARDIAC FAILURE [None]
  - DEEP VEIN THROMBOSIS [None]
  - INFECTION [None]
  - PROSTATE CANCER [None]
  - PULMONARY OEDEMA [None]
